FAERS Safety Report 25809938 (Version 2)
Quarter: 2025Q3

REPORT INFORMATION
  Report Type: Report from Study
  Country: CA (occurrence: CA)
  Receive Date: 20250917
  Receipt Date: 20250919
  Transmission Date: 20251021
  Serious: Yes (Hospitalization)
  Sender: ABBVIE
  Company Number: CA-ABBVIE-6458348

PATIENT
  Age: 61 Year
  Sex: Male

DRUGS (1)
  1. RINVOQ [Suspect]
     Active Substance: UPADACITINIB
     Indication: Crohn^s disease
     Dosage: FORM STRENGTH 30MG
     Route: 048
     Dates: start: 20250430

REACTIONS (2)
  - Small intestinal obstruction [Unknown]
  - Pain [Unknown]

NARRATIVE: CASE EVENT DATE: 20250101
